FAERS Safety Report 19709075 (Version 1)
Quarter: 2021Q3

REPORT INFORMATION
  Report Type: Spontaneous
  Country: MX (occurrence: MX)
  Receive Date: 20210816
  Receipt Date: 20210816
  Transmission Date: 20211014
  Serious: Yes (Hospitalization, Other)
  Sender: FDA-Public Use
  Company Number: MX-PFIZER INC-202100993286

PATIENT
  Age: 67 Year
  Sex: Female

DRUGS (2)
  1. HALCION [Suspect]
     Active Substance: TRIAZOLAM
     Indication: DEPRESSION
     Dosage: UNK
  2. HALCION [Suspect]
     Active Substance: TRIAZOLAM
     Indication: ANXIETY

REACTIONS (11)
  - Suicidal ideation [Unknown]
  - Panic attack [Unknown]
  - Blood pressure increased [Unknown]
  - Illness [Unknown]
  - Crying [Unknown]
  - Hypersensitivity [Unknown]
  - Weight decreased [Unknown]
  - Drug dependence [Unknown]
  - Anxiety [Unknown]
  - Off label use [Unknown]
  - Drug effective for unapproved indication [Unknown]
